FAERS Safety Report 4759970-4 (Version None)
Quarter: 2005Q3

REPORT INFORMATION
  Report Type: 
  Country: None (occurrence: None)
  Receive Date: 20050831
  Receipt Date: 20050816
  Transmission Date: 20060218
  Serious: Yes (Death, Hospitalization)
  Sender: FDA-Public Use
  Company Number: US_0507120420

PATIENT
  Age: 80 Year
  Sex: Male
  Weight: 88 kg

DRUGS (16)
  1. PEMETREXED [Suspect]
     Indication: NON-SMALL CELL LUNG CANCER
     Dosage: 500 MG/M2
     Dates: start: 20050708, end: 20050805
  2. GEMCITABINE HYDROCHLORIDE-IV (GEMCITABINE) [Suspect]
     Indication: NON-SMALL CELL LUNG CANCER
     Dosage: 1500 MG/M2
     Dates: start: 20050807, end: 20050805
  3. DIGOXIN [Concomitant]
  4. SPIRIVA [Concomitant]
  5. PERCOCET [Concomitant]
  6. DEXAMETHASONE [Concomitant]
  7. FOLIC ACID [Concomitant]
  8. SOTALOL HCL [Concomitant]
  9. CARAFATE [Concomitant]
  10. POLYETHYLENE GLYCOL [Concomitant]
  11. VITAMIN B-12 [Concomitant]
  12. ZOFRAN [Concomitant]
  13. MEGACE [Concomitant]
  14. CELEBREX [Concomitant]
  15. CITRACAL + D [Concomitant]
  16. LORTAB [Concomitant]

REACTIONS (4)
  - ANAEMIA [None]
  - LEUKOPENIA [None]
  - NON-CARDIOGENIC PULMONARY OEDEMA [None]
  - PNEUMONIA [None]
